FAERS Safety Report 8612416 (Version 8)
Quarter: 2013Q2

REPORT INFORMATION
  Report Type: Report from Study
  Country: CA (occurrence: CA)
  Receive Date: 20120613
  Receipt Date: 20130508
  Transmission Date: 20140414
  Serious: Yes (Death, Other)
  Sender: FDA-Public Use
  Company Number: CA-ROCHE-1073514

PATIENT
  Sex: Male

DRUGS (6)
  1. ZELBORAF [Suspect]
     Indication: METASTATIC MALIGNANT MELANOMA
     Route: 048
     Dates: start: 20120516, end: 20130305
  2. OXYCOCET [Concomitant]
     Indication: PAIN
     Dosage: PM
     Route: 065
  3. ZOPICLONE [Concomitant]
     Indication: INSOMNIA
     Route: 065
  4. EFFEXOR [Concomitant]
     Indication: DEPRESSION
     Route: 065
  5. OMEGA 3 [Concomitant]
     Route: 048
  6. VITAMIN C [Concomitant]
     Route: 065

REACTIONS (8)
  - Disease progression [Fatal]
  - Mass [Not Recovered/Not Resolved]
  - Metastases to central nervous system [Unknown]
  - Pruritus [Not Recovered/Not Resolved]
  - Arthralgia [Not Recovered/Not Resolved]
  - Arthralgia [Not Recovered/Not Resolved]
  - Fatigue [Not Recovered/Not Resolved]
  - Alopecia [Not Recovered/Not Resolved]
